FAERS Safety Report 11220616 (Version 2)
Quarter: 2015Q3

REPORT INFORMATION
  Report Type: Spontaneous
  Country: FR (occurrence: FR)
  Receive Date: 20150626
  Receipt Date: 20150914
  Transmission Date: 20151125
  Serious: Yes (Life-Threatening)
  Sender: FDA-Public Use
  Company Number: FR-ROCHE-1596400

PATIENT
  Age: 68 Year
  Sex: Female

DRUGS (11)
  1. ATARAX [Suspect]
     Active Substance: HYDROXYZINE\HYDROXYZINE HYDROCHLORIDE
     Indication: PRODUCT USED FOR UNKNOWN INDICATION
     Dosage: SCORED COATED-FILM TABLET, 25 MG
     Route: 048
     Dates: start: 201502, end: 20150530
  2. TERALITHE [Suspect]
     Active Substance: LITHIUM CARBONATE
     Route: 065
  3. VALIUM [Suspect]
     Active Substance: DIAZEPAM
     Indication: PRODUCT USED FOR UNKNOWN INDICATION
     Dosage: ORAL SOLUTION IN DROP, DOSE ADMINISTERED IN THE EVENING
     Route: 048
     Dates: start: 201502, end: 20150530
  4. SULFARLEM [Concomitant]
     Active Substance: ANETHOLTRITHION
     Route: 065
     Dates: end: 20150530
  5. VALDOXAN [Concomitant]
     Active Substance: AGOMELATINE
     Route: 065
     Dates: start: 20150224, end: 20150514
  6. TERALITHE [Suspect]
     Active Substance: LITHIUM CARBONATE
     Indication: PRODUCT USED FOR UNKNOWN INDICATION
     Dosage: SCORED SUSTAINED-RELEASE TABLET, 400 MG
     Route: 048
     Dates: start: 20150512, end: 20150530
  7. THERALENE (FRANCE) [Suspect]
     Active Substance: TRIMEPRAZINE
     Indication: PRODUCT USED FOR UNKNOWN INDICATION
     Dosage: ORAL SOLUTION IN DROP
     Route: 048
     Dates: start: 201502, end: 20150530
  8. ABILIFY [Concomitant]
     Active Substance: ARIPIPRAZOLE
     Route: 065
     Dates: start: 2014, end: 20150530
  9. EDUCTYL [Concomitant]
     Active Substance: POTASSIUM BITARTRATE\SODIUM BICARBONATE
     Route: 065
     Dates: end: 20150530
  10. CLOMIPRAMINE [Suspect]
     Active Substance: CLOMIPRAMINE
     Indication: PRODUCT USED FOR UNKNOWN INDICATION
     Dosage: DOSE= 75 MG - 50 MG - 75 MG
     Route: 048
     Dates: start: 20150416, end: 20150530
  11. IMOVANE [Suspect]
     Active Substance: ZOPICLONE
     Indication: PRODUCT USED FOR UNKNOWN INDICATION
     Dosage: DOSE ADMINISTRATION AT BEDTIME
     Route: 048
     Dates: start: 201502, end: 20150530

REACTIONS (1)
  - Pneumonia [Recovering/Resolving]

NARRATIVE: CASE EVENT DATE: 201505
